FAERS Safety Report 4341136-3 (Version None)
Quarter: 2004Q2

REPORT INFORMATION
  Report Type: 
  Country: None (occurrence: None)
  Receive Date: 20040419
  Receipt Date: 20031112
  Transmission Date: 20050107
  Serious: Yes (Hospitalization)
  Sender: FDA-Public Use
  Company Number: US-GLAXOSMITHKLINE-A0439439A

PATIENT

DRUGS (2)
  1. WELLBUTRIN [Suspect]
  2. HIV TREATMENTS (UNSPECIFIED) [Concomitant]

REACTIONS (2)
  - DRUG INTERACTION [None]
  - HYPERGLYCAEMIA [None]
